FAERS Safety Report 16034414 (Version 1)
Quarter: 2019Q1

REPORT INFORMATION
  Report Type: Spontaneous
  Country: US (occurrence: US)
  Receive Date: 20190305
  Receipt Date: 20190305
  Transmission Date: 20190418
  Serious: No
  Sender: FDA-Public Use
  Company Number: US-PFIZER INC-2019080319

PATIENT
  Age: 74 Year
  Sex: Female
  Weight: 54.42 kg

DRUGS (7)
  1. CHANTIX [Suspect]
     Active Substance: VARENICLINE TARTRATE
     Dosage: 0.5 MG, 2X/DAY [WITH A GLASS OF WATER AFTER EATING]
     Route: 048
  2. ELAVIL [Concomitant]
     Active Substance: AMITRIPTYLINE HYDROCHLORIDE
     Indication: INSOMNIA
     Dosage: 60 MG, 1X/DAY(EVERY NIGHT BEFORE SHE WENT TO SLEEP)
     Dates: start: 1989
  3. LORAZEPAM. [Concomitant]
     Active Substance: LORAZEPAM
     Indication: ANXIETY
     Dosage: 1 MG, 1X/DAY [IN THE EVENING]
     Route: 048
     Dates: start: 1999
  4. CHANTIX [Suspect]
     Active Substance: VARENICLINE TARTRATE
     Dosage: 0.5 MG, 1X/DAY[WITH A GLASS OF WATER AFTER EATING]
     Route: 048
  5. LORAZEPAM. [Concomitant]
     Active Substance: LORAZEPAM
     Indication: NAUSEA
     Dosage: UNK
     Dates: start: 20190204
  6. CHANTIX [Suspect]
     Active Substance: VARENICLINE TARTRATE
     Indication: SMOKING CESSATION THERAPY
     Dosage: UNK
     Route: 048
     Dates: start: 20190204
  7. CHANTIX [Suspect]
     Active Substance: VARENICLINE TARTRATE
     Dosage: 1 MG, 2X/DAY [WITH A GLASS OF WATER AFTER EATING]
     Route: 048
     Dates: start: 20190219

REACTIONS (5)
  - Nausea [Unknown]
  - Condition aggravated [Unknown]
  - Nervousness [Unknown]
  - Anxiety [Unknown]
  - Product use issue [Unknown]

NARRATIVE: CASE EVENT DATE: 20190219
